FAERS Safety Report 17639635 (Version 3)
Quarter: 2020Q2

REPORT INFORMATION
  Report Type: Spontaneous
  Country: DE (occurrence: DE)
  Receive Date: 20200407
  Receipt Date: 20200527
  Transmission Date: 20200713
  Serious: Yes (Life-Threatening, Hospitalization)
  Sender: FDA-Public Use
  Company Number: DE-BAYER-2020-054417

PATIENT
  Age: 72 Year
  Sex: Male
  Weight: 62 kg

DRUGS (9)
  1. CLOBUTINOL HYDROCHLORIDE [Suspect]
     Active Substance: CLOBUTINOL HYDROCHLORIDE
     Dosage: UNKNOWN: 1-2 DAYS
     Route: 048
  2. BRONCHICUM [PRIMULA VERIS;THYMUS VULGARIS] [Suspect]
     Active Substance: HERBALS
     Indication: BRONCHITIS
     Dosage: UNKNOWN: 1-2 DAYS
     Route: 048
  3. METFORMIN [Concomitant]
     Active Substance: METFORMIN HYDROCHLORIDE
     Indication: DIABETES MELLITUS
     Dosage: 1700 MG, QD
  4. IRBESARTAN. [Concomitant]
     Active Substance: IRBESARTAN
     Indication: HYPERTENSION
     Dosage: 150 MG, QD
  5. FUROSEMID [FUROSEMIDE] [Concomitant]
     Active Substance: FUROSEMIDE
     Indication: CARDIAC FAILURE
     Dosage: 60 MG, QD
  6. ATORVASTATIN [Concomitant]
     Active Substance: ATORVASTATIN
     Indication: HYPERLIPIDAEMIA
     Dosage: 20 MG, QD
  7. CIPROBAY 250 MG [Suspect]
     Active Substance: CIPROFLOXACIN
     Dosage: 250 MG, ONCE
     Route: 048
  8. METOPROLOL. [Concomitant]
     Active Substance: METOPROLOL
     Indication: CARDIAC FAILURE
     Dosage: 200 MG, QD
  9. ASPIRIN. [Concomitant]
     Active Substance: ASPIRIN
     Indication: PERIPHERAL ARTERIAL OCCLUSIVE DISEASE
     Dosage: 100

REACTIONS (2)
  - Acute hepatic failure [Recovered/Resolved]
  - Vomiting [Recovered/Resolved]

NARRATIVE: CASE EVENT DATE: 20200205
